FAERS Safety Report 4844583-6 (Version None)
Quarter: 2005Q4

REPORT INFORMATION
  Report Type: 
  Country: None (occurrence: None)
  Receive Date: 20051125
  Receipt Date: 20051114
  Transmission Date: 20060501
  Serious: Yes (Death, Hospitalization, Other)
  Sender: FDA-Public Use
  Company Number: 2005156094

PATIENT
  Age: 90 Year
  Sex: Male

DRUGS (20)
  1. CELEBREX [Suspect]
     Indication: ARTHRITIS
     Dosage: 200 MG (200 MG, 1 IN 1 D), ORAL
     Route: 048
     Dates: end: 20050701
  2. VERAPAMIL [Concomitant]
  3. ARICEPT [Concomitant]
  4. NEURONTIN [Concomitant]
  5. ULTRACET [Concomitant]
  6. DITROPAN [Concomitant]
  7. RANITIDINE HCL [Concomitant]
  8. ASPIRIN [Concomitant]
  9. LOMOTIL [Concomitant]
  10. CHOLESTYRAMINE RESIN (COLESTYRAMINE) [Concomitant]
  11. VITAMIN C (VITAMIN C) [Concomitant]
  12. ALL OTHER THERAPEUTIC PRODUCTS (ALL OTHER THERAPEUTIC PRODUCTS) [Concomitant]
  13. METAMUCIL-2 [Concomitant]
  14. WARFARIN SODIUM [Concomitant]
  15. VITAMINS (VITAMINS) [Concomitant]
  16. LASIX [Concomitant]
  17. ISOSORBIDE MONONITRATE [Concomitant]
  18. ZOLOFT [Concomitant]
  19. NAMENDA [Concomitant]
  20. CELEXA [Concomitant]

REACTIONS (3)
  - BLOOD PRESSURE FLUCTUATION [None]
  - PNEUMONIA [None]
  - ULCER HAEMORRHAGE [None]
